FAERS Safety Report 7455075-2 (Version None)
Quarter: 2011Q2

REPORT INFORMATION
  Report Type: 
  Country: None (occurrence: None)
  Receive Date: 20110503
  Receipt Date: 20110428
  Transmission Date: 20111010
  Serious: Yes (Hospitalization)
  Sender: FDA-Public Use
  Company Number: CA-PFIZER INC-2011092736

PATIENT
  Age: 75 Year
  Sex: Female

DRUGS (3)
  1. ADVIL LIQUI-GELS [Suspect]
     Indication: PAIN
     Dosage: UNK
  2. ZOLEDRONIC ACID [Suspect]
     Indication: OSTEOPOROSIS
     Dosage: UNK
     Dates: start: 20110204
  3. ACETAMINOPHEN [Suspect]
     Indication: PAIN

REACTIONS (5)
  - PALPITATIONS [None]
  - DRUG INEFFECTIVE [None]
  - ASTHENIA [None]
  - FEELING ABNORMAL [None]
  - PAIN [None]
